FAERS Safety Report 11242768 (Version 1)
Quarter: 2015Q3

REPORT INFORMATION
  Report Type: Other
  Country: GB (occurrence: GB)
  Receive Date: 20150707
  Receipt Date: 20150707
  Transmission Date: 20151125
  Serious: No
  Sender: FDA-Public Use
  Company Number: GB-LUPIN PHARMACEUTICALS INC.-2015-01559

PATIENT
  Age: 39 Year
  Sex: Female

DRUGS (1)
  1. DULOXETINE. [Suspect]
     Active Substance: DULOXETINE
     Indication: PRODUCT USED FOR UNKNOWN INDICATION
     Route: 065

REACTIONS (6)
  - Compulsive shopping [Unknown]
  - Logorrhoea [Unknown]
  - Alcoholism [Unknown]
  - Hypomania [Unknown]
  - Akathisia [Unknown]
  - Agitation [Unknown]
